FAERS Safety Report 16988494 (Version 1)
Quarter: 2019Q4

REPORT INFORMATION
  Report Type: Spontaneous
  Country: US (occurrence: US)
  Receive Date: 20190919
  Receipt Date: 20190919
  Transmission Date: 20200122
  Serious: Yes (Life-Threatening, Hospitalization, Other)
  Sender: FDA-Public Use
  Company Number: None

PATIENT
  Sex: Female
  Weight: 72.57 kg

DRUGS (2)
  1. ROGAINE [Suspect]
     Active Substance: MINOXIDIL
     Indication: ALOPECIA
     Dosage: ?          OTHER DOSE:HALF A CAPFUL;OTHER ROUTE:TOP OF SCALP?
     Dates: start: 200810, end: 20190711
  2. MEMBERS MARK MINOXIDIL [Suspect]
     Active Substance: MINOXIDIL
     Indication: ALOPECIA
     Dosage: ?          OTHER DOSE:HALF A CAPFUL;OTHER ROUTE:TOP OF SCALP?

REACTIONS (4)
  - Atrial fibrillation [None]
  - Treatment failure [None]
  - International normalised ratio abnormal [None]
  - Haemorrhage [None]
